FAERS Safety Report 23695553 (Version 3)
Quarter: 2024Q4

REPORT INFORMATION
  Report Type: Spontaneous
  Country: ES (occurrence: ES)
  Receive Date: 20240402
  Receipt Date: 20241210
  Transmission Date: 20250115
  Serious: Yes (Hospitalization, Other)
  Sender: AUROBINDO
  Company Number: ES-UCBSA-2024013441

PATIENT
  Age: 1 Month
  Sex: Male
  Weight: 3.9 kg

DRUGS (35)
  1. LACOSAMIDE [Suspect]
     Active Substance: LACOSAMIDE
     Indication: Epilepsy of infancy with migrating focal seizures
     Dosage: 20 MILLIGRAM, ONCE A DAY
     Route: 042
     Dates: start: 20220419, end: 20220615
  2. LACOSAMIDE [Suspect]
     Active Substance: LACOSAMIDE
     Indication: Epilepsy
     Dosage: 10 MILLIGRAM/KILOGRAM, ONCE A DAY
     Route: 042
     Dates: start: 20220419, end: 20220615
  3. LACOSAMIDE [Suspect]
     Active Substance: LACOSAMIDE
     Indication: Gene mutation
  4. LACOSAMIDE [Suspect]
     Active Substance: LACOSAMIDE
     Indication: Tonic convulsion
  5. LACOSAMIDE [Suspect]
     Active Substance: LACOSAMIDE
     Indication: Clonic convulsion
  6. LACOSAMIDE [Suspect]
     Active Substance: LACOSAMIDE
     Indication: Partial seizures with secondary generalisation
  7. KETAMINE [Suspect]
     Active Substance: KETAMINE
     Indication: Gene mutation
     Dosage: 2 MILLIGRAM/KILOGRAM
     Route: 042
     Dates: start: 20220419, end: 20220428
  8. KETAMINE [Suspect]
     Active Substance: KETAMINE
     Indication: Epilepsy of infancy with migrating focal seizures
  9. KETAMINE [Suspect]
     Active Substance: KETAMINE
     Indication: Epilepsy
  10. KETAMINE [Suspect]
     Active Substance: KETAMINE
     Indication: Tonic convulsion
  11. KETAMINE [Suspect]
     Active Substance: KETAMINE
     Indication: Clonic convulsion
  12. KETAMINE [Suspect]
     Active Substance: KETAMINE
     Indication: Partial seizures with secondary generalisation
  13. MIDAZOLAM [Suspect]
     Active Substance: MIDAZOLAM
     Indication: Epilepsy of infancy with migrating focal seizures
     Dosage: 0.5 MILLIGRAM/KILOGRAM
     Dates: start: 20220419, end: 20220428
  14. MIDAZOLAM [Suspect]
     Active Substance: MIDAZOLAM
     Indication: Epilepsy
  15. MIDAZOLAM [Suspect]
     Active Substance: MIDAZOLAM
     Indication: Gene mutation
  16. MIDAZOLAM [Suspect]
     Active Substance: MIDAZOLAM
     Indication: Tonic convulsion
  17. MIDAZOLAM [Suspect]
     Active Substance: MIDAZOLAM
     Indication: Clonic convulsion
  18. MIDAZOLAM [Suspect]
     Active Substance: MIDAZOLAM
     Indication: Partial seizures with secondary generalisation
  19. PERAMPANEL [Suspect]
     Active Substance: PERAMPANEL
     Indication: Epilepsy of infancy with migrating focal seizures
     Dosage: 1 MILLIGRAM, ONCE A DAY
     Route: 065
     Dates: start: 20220419, end: 20220615
  20. PERAMPANEL [Suspect]
     Active Substance: PERAMPANEL
     Indication: Epilepsy
  21. PERAMPANEL [Suspect]
     Active Substance: PERAMPANEL
     Indication: Gene mutation
  22. PERAMPANEL [Suspect]
     Active Substance: PERAMPANEL
     Indication: Tonic convulsion
  23. PERAMPANEL [Suspect]
     Active Substance: PERAMPANEL
     Indication: Clonic convulsion
  24. PERAMPANEL [Suspect]
     Active Substance: PERAMPANEL
     Indication: Partial seizures with secondary generalisation
  25. PHENYTOIN [Suspect]
     Active Substance: PHENYTOIN
     Indication: Gene mutation
     Dosage: UNK
     Route: 042
     Dates: start: 20220419, end: 20220615
  26. PHENYTOIN [Suspect]
     Active Substance: PHENYTOIN
     Indication: Epilepsy of infancy with migrating focal seizures
  27. PHENYTOIN [Suspect]
     Active Substance: PHENYTOIN
     Indication: Epilepsy
  28. PHENYTOIN [Suspect]
     Active Substance: PHENYTOIN
     Indication: Tonic convulsion
  29. PHENYTOIN [Suspect]
     Active Substance: PHENYTOIN
     Indication: Clonic convulsion
  30. PHENYTOIN [Suspect]
     Active Substance: PHENYTOIN
     Indication: Partial seizures with secondary generalisation
  31. THIOPENTAL [Suspect]
     Active Substance: THIOPENTAL
     Indication: Generalised tonic-clonic seizure
     Dosage: 2 MILLIGRAM/KILOGRAM
     Route: 042
     Dates: start: 20220428, end: 20220615
  32. THIOPENTAL [Suspect]
     Active Substance: THIOPENTAL
     Indication: Partial seizures with secondary generalisation
  33. PROPOFOL [Suspect]
     Active Substance: PROPOFOL
     Indication: Generalised tonic-clonic seizure
     Dosage: 2 MILLIGRAM/KILOGRAM
     Route: 042
     Dates: start: 20220428, end: 20220615
  34. PROPOFOL [Suspect]
     Active Substance: PROPOFOL
     Indication: Partial seizures with secondary generalisation
  35. ACYCLOVIR [Concomitant]
     Active Substance: ACYCLOVIR
     Indication: Coxsackie virus test positive
     Dosage: 10 MILLIGRAM/KILOGRAM (10 MILLIGRAM/KILOGRAM EVERY 8 HOURS)
     Route: 042

REACTIONS (5)
  - Ileus paralytic [Recovered/Resolved]
  - Cerebral atrophy [Unknown]
  - Multiple-drug resistance [Recovered/Resolved]
  - Off label use [Unknown]
  - Drug ineffective [Unknown]
